FAERS Safety Report 5046805-8 (Version None)
Quarter: 2006Q3

REPORT INFORMATION
  Report Type: 
  Country: None (occurrence: None)
  Receive Date: 20060705
  Receipt Date: 20060705
  Transmission Date: 20061208
  Serious: No
  Sender: FDA-Public Use
  Company Number: None

PATIENT
  Age: 33 Year
  Sex: Female

DRUGS (1)
  1. CYMBALTA [Suspect]
     Indication: PAIN
     Dosage: ORAL; 20.0 MILLIGRAM
     Route: 048
     Dates: start: 20060502, end: 20060505

REACTIONS (1)
  - OEDEMA PERIPHERAL [None]
